FAERS Safety Report 6093021-7 (Version None)
Quarter: 2009Q1

REPORT INFORMATION
  Report Type: 
  Country: None (occurrence: None)
  Receive Date: 20090224
  Receipt Date: 20090218
  Transmission Date: 20090719
  Serious: Yes (Hospitalization)
  Sender: FDA-Public Use
  Company Number: SPV1-2009-00255

PATIENT
  Sex: Male

DRUGS (1)
  1. DAYTRANA [Suspect]
     Indication: ATTENTION DEFICIT/HYPERACTIVITY DISORDER
     Dosage: TRANSDERMAL
     Route: 062
     Dates: start: 20090101, end: 20090201

REACTIONS (3)
  - ANGIOEDEMA [None]
  - LYMPHADENOPATHY [None]
  - TONGUE OEDEMA [None]
